FAERS Safety Report 8835401 (Version 1)
Quarter: 2012Q4

REPORT INFORMATION
  Report Type: 
  Country: US (occurrence: US)
  Receive Date: 20121011
  Receipt Date: 20121011
  Transmission Date: 20130627
  Serious: No
  Sender: FDA-Public Use
  Company Number: US-PFIZER INC-2012251929

PATIENT
  Age: 71 Year
  Sex: Female
  Weight: 62.6 kg

DRUGS (12)
  1. PRONUTRIENTS PROBIOTICS [Suspect]
     Indication: VITAMIN SUPPLEMENTATION
     Dosage: 1 DF, daily
     Route: 048
     Dates: start: 20121007, end: 20121008
  2. ZITHROMAX [Suspect]
     Dosage: UNK
  3. PHENAZOPYRIDINE HYDROCHLORIDE [Suspect]
     Dosage: UNK
  4. AMOXICILLIN [Suspect]
     Dosage: UNK
  5. PREDNISONE [Suspect]
     Indication: LUNG DISORDER
     Dosage: UNK
  6. PREDNISONE [Suspect]
     Indication: DYSPNOEA
     Dosage: 10 mg, daily
  7. PREDNISONE [Suspect]
     Indication: ASTHMA
     Dosage: 5 mg, daily
  8. PREDNISONE [Suspect]
     Indication: EMPHYSEMA
  9. BACTRIM [Suspect]
     Dosage: UNK
  10. HYOSCYAMINE [Suspect]
     Dosage: UNK
  11. DILTIAZEM [Concomitant]
     Indication: HYPERTENSION
     Dosage: 180 mg, daily
  12. SERTRALINE [Concomitant]
     Indication: DEPRESSION
     Dosage: 25 mg, daily

REACTIONS (5)
  - Swelling face [Recovering/Resolving]
  - Vitamin D decreased [Unknown]
  - Feeling hot [Recovering/Resolving]
  - Swelling [Not Recovered/Not Resolved]
  - Intentional drug misuse [Unknown]
